FAERS Safety Report 24260885 (Version 2)
Quarter: 2024Q3

REPORT INFORMATION
  Report Type: Spontaneous
  Country: JP (occurrence: JP)
  Receive Date: 20240828
  Receipt Date: 20240905
  Transmission Date: 20241016
  Serious: Yes (Death, Other)
  Sender: SANOFI AVENTIS
  Company Number: JP-SAKK-2024SA250608AA

PATIENT
  Age: 75 Year
  Sex: Male

DRUGS (1)
  1. ENJAYMO [Suspect]
     Active Substance: SUTIMLIMAB-JOME
     Indication: Product used for unknown indication
     Dosage: UNK
     Route: 041
     Dates: end: 202407

REACTIONS (2)
  - Neoplasm malignant [Fatal]
  - General physical health deterioration [Unknown]

NARRATIVE: CASE EVENT DATE: 20240701
